FAERS Safety Report 13344783 (Version 2)
Quarter: 2017Q2

REPORT INFORMATION
  Report Type: Spontaneous
  Country: PT (occurrence: PT)
  Receive Date: 20170317
  Receipt Date: 20170406
  Transmission Date: 20170830
  Serious: Yes (Hospitalization)
  Sender: FDA-Public Use
  Company Number: PT-CONCORDIA PHARMACEUTICALS INC.-GSH201703-001784

PATIENT
  Age: 86 Year
  Sex: Male

DRUGS (2)
  1. ROSUVASTATIN. [Concomitant]
     Active Substance: ROSUVASTATIN
  2. NILUTAMIDE. [Suspect]
     Active Substance: NILUTAMIDE
     Indication: PROSTATE CANCER
     Route: 065

REACTIONS (10)
  - Pleural effusion [Recovered/Resolved]
  - Hypoxia [Recovered/Resolved]
  - Dyspnoea [Recovered/Resolved]
  - Interstitial lung disease [Recovered/Resolved]
  - Rales [Recovered/Resolved]
  - Decreased appetite [Recovered/Resolved]
  - C-reactive protein increased [Recovered/Resolved]
  - Breath sounds abnormal [Recovered/Resolved]
  - Lung infiltration [Recovered/Resolved]
  - Cough [Recovered/Resolved]
